FAERS Safety Report 5060130-0 (Version None)
Quarter: 2006Q3

REPORT INFORMATION
  Report Type: 
  Country: None (occurrence: None)
  Receive Date: 20060718
  Receipt Date: 20060628
  Transmission Date: 20061208
  Serious: Yes (Death, Hospitalization)
  Sender: FDA-Public Use
  Company Number: RU200606005563

PATIENT
  Age: 51 Year
  Sex: Male
  Weight: 71 kg

DRUGS (1)
  1. PEMETREXED (PEMETREXED UNKNOWN FORMULATION) UNKNOWN [Suspect]
     Indication: NON-SMALL CELL LUNG CANCER
     Dosage: 930 MG, UNK, INTRAVENOUS
     Route: 042
     Dates: start: 20060606

REACTIONS (5)
  - APPENDIX DISORDER [None]
  - FEBRILE NEUTROPENIA [None]
  - MASS [None]
  - PERITONITIS [None]
  - PROCEDURAL COMPLICATION [None]
